FAERS Safety Report 4422789-8 (Version None)
Quarter: 2004Q3

REPORT INFORMATION
  Report Type: 
  Country: None (occurrence: None)
  Receive Date: 20040719
  Receipt Date: 20031217
  Transmission Date: 20050211
  Serious: Yes (Life-Threatening, Hospitalization, Other)
  Sender: FDA-Public Use
  Company Number: M03-INT-127

PATIENT
  Age: 69 Year
  Sex: Male
  Weight: 69 kg

DRUGS (21)
  1. INTEGRILIN [Suspect]
     Indication: CORONARY ANGIOPLASTY
     Dosage: 6.2 ML X 2, IV BOLUS; SEE IMAGE
     Route: 040
     Dates: start: 20031216, end: 20031216
  2. INTEGRILIN [Suspect]
     Indication: CORONARY ANGIOPLASTY
     Dosage: 6.2 ML X 2, IV BOLUS; SEE IMAGE
     Route: 040
     Dates: start: 20031216, end: 20031217
  3. HEPARIN [Concomitant]
  4. LOVENOX [Concomitant]
  5. NITROGLYCERIN [Concomitant]
  6. PLAVIX [Concomitant]
  7. ASPIRIN [Concomitant]
  8. FLOMAX [Concomitant]
  9. SYNTHROID [Concomitant]
  10. CORDARONE [Concomitant]
  11. ZOCOR [Concomitant]
  12. PROTONIX [Concomitant]
  13. LASIX [Concomitant]
  14. K-DUR 10 [Concomitant]
  15. HUMIBID [Concomitant]
  16. PREDNISOLONE [Concomitant]
  17. INSULIN [Concomitant]
  18. RESTORIL [Concomitant]
  19. NALBUPHINE [Concomitant]
  20. REGLAN [Concomitant]
  21. WARFARIN SODIUM [Concomitant]

REACTIONS (5)
  - COMA [None]
  - HAEMORRHAGE INTRACRANIAL [None]
  - HEADACHE [None]
  - PUPILS UNEQUAL [None]
  - VOMITING [None]
